FAERS Safety Report 12118510 (Version 1)
Quarter: 2016Q1

REPORT INFORMATION
  Report Type: Spontaneous
  Country: US (occurrence: None)
  Receive Date: 20160224
  Receipt Date: 20160224
  Transmission Date: 20160526
  Serious: Yes (Life-Threatening, Hospitalization, Disabling)
  Sender: FDA-Public Use
  Company Number: None

PATIENT
  Age: 69 Year
  Sex: Male

DRUGS (25)
  1. SILDENAFIL. [Concomitant]
     Active Substance: SILDENAFIL
  2. TRAMADOL. [Concomitant]
     Active Substance: TRAMADOL
  3. DEXAMETHASONE. [Concomitant]
     Active Substance: DEXAMETHASONE
  4. DILTIAZEM [Concomitant]
     Active Substance: DILTIAZEM
  5. FAMOTIDINE. [Concomitant]
     Active Substance: FAMOTIDINE
  6. ATENOLOL. [Concomitant]
     Active Substance: ATENOLOL
  7. CLOBETASOL [Concomitant]
     Active Substance: CLOBETASOL
  8. OMEPRAZOLE. [Concomitant]
     Active Substance: OMEPRAZOLE
  9. INSULIN LISPRO [Concomitant]
     Active Substance: INSULIN LISPRO
  10. MELATONIN [Concomitant]
     Active Substance: MELATONIN
  11. ETANERCEPT [Suspect]
     Active Substance: ETANERCEPT
     Indication: PSORIASIS
     Dosage: 4 SINGLE-USES ONCE A WEEK INJECTION
  12. TYLENOL [Concomitant]
     Active Substance: ACETAMINOPHEN
  13. PRAVASTATIN [Concomitant]
     Active Substance: PRAVASTATIN\PRAVASTATIN SODIUM
  14. OMEGA-3 ACIDS [Concomitant]
     Active Substance: OMEGA-3 FATTY ACIDS
  15. INSULIN GLARGINE [Concomitant]
     Active Substance: INSULIN GLARGINE
  16. MULTIVITAMIN [Concomitant]
     Active Substance: VITAMINS
  17. VITAMIN C [Concomitant]
     Active Substance: ASCORBIC ACID
  18. HYDROCHLOROTHIAZIDE. [Concomitant]
     Active Substance: HYDROCHLOROTHIAZIDE
  19. METFORMIN [Concomitant]
     Active Substance: METFORMIN HYDROCHLORIDE
  20. ETANERCEPT [Suspect]
     Active Substance: ETANERCEPT
     Indication: RHEUMATOID ARTHRITIS
     Dosage: 4 SINGLE-USES ONCE A WEEK INJECTION
  21. TUCKS HEMORRHOIDAL PADS [Concomitant]
     Active Substance: WITCH HAZEL
  22. ASPIRIN. [Concomitant]
     Active Substance: ASPIRIN
  23. GLUCOSAMINE-CHONDROITIN [Concomitant]
     Active Substance: CHONDROITIN SULFATE (BOVINE)\GLUCOSAMINE SULFATE
  24. LISINOPRIL. [Concomitant]
     Active Substance: LISINOPRIL
  25. COENZYME Q10 [Concomitant]
     Active Substance: UBIDECARENONE

REACTIONS (4)
  - B-cell lymphoma [None]
  - Malaise [None]
  - Headache [None]
  - Diplopia [None]

NARRATIVE: CASE EVENT DATE: 20160129
